FAERS Safety Report 20219904 (Version 2)
Quarter: 2021Q4

REPORT INFORMATION
  Report Type: Report from Study
  Country: CA (occurrence: CA)
  Receive Date: 20211222
  Receipt Date: 20211229
  Transmission Date: 20220304
  Serious: Yes (Death, Hospitalization)
  Sender: FDA-Public Use
  Company Number: CA-JNJFOC-20211224090

PATIENT
  Age: 62 Year
  Sex: Male
  Weight: 102.2 kg

DRUGS (7)
  1. DARATUMUMAB [Suspect]
     Active Substance: DARATUMUMAB
     Indication: Plasma cell myeloma
     Dosage: LAST IP DOSE 01-DEC-2021
     Route: 058
     Dates: start: 20211007
  2. ACYCLOVIR [Concomitant]
     Active Substance: ACYCLOVIR
     Indication: Prophylaxis
     Route: 065
  3. PANTOPRAZOLE [Concomitant]
     Active Substance: PANTOPRAZOLE
     Indication: Prophylaxis
     Route: 065
  4. ORIPRIM [Concomitant]
     Indication: Prophylaxis
     Route: 065
  5. TENOFOVIR [Concomitant]
     Active Substance: TENOFOVIR
     Indication: Prophylaxis
     Route: 065
  6. OXYCODONE [Concomitant]
     Active Substance: OXYCODONE
     Indication: Pain in extremity
  7. PREGABALIN [Concomitant]
     Active Substance: PREGABALIN
     Indication: Peripheral sensory neuropathy

REACTIONS (1)
  - COVID-19 pneumonia [Fatal]

NARRATIVE: CASE EVENT DATE: 20211207
